FAERS Safety Report 7158772-1 (Version None)
Quarter: 2010Q4

REPORT INFORMATION
  Report Type: 
  Country: None (occurrence: None)
  Receive Date: 20101214
  Receipt Date: 20100716
  Transmission Date: 20110411
  Serious: No
  Sender: FDA-Public Use
  Company Number: US-ASTRAZENECA-2010SE33302

PATIENT
  Sex: Male

DRUGS (3)
  1. CRESTOR [Suspect]
     Indication: HYPERCHOLESTEROLAEMIA
     Dosage: EVERY DAY
     Route: 048
  2. NIASPAN [Concomitant]
     Indication: HYPERCHOLESTEROLAEMIA
  3. RESTASIS [Concomitant]
     Indication: DRY EYE

REACTIONS (1)
  - POLLAKIURIA [None]
